FAERS Safety Report 8684371 (Version 2)
Quarter: 2013Q2

REPORT INFORMATION
  Report Type: Spontaneous
  Country: DK (occurrence: DK)
  Receive Date: 20120726
  Receipt Date: 20130424
  Transmission Date: 20140414
  Serious: Yes (Other)
  Sender: FDA-Public Use
  Company Number: PHHY2012DK063288

PATIENT
  Age: 12 Year
  Sex: Female

DRUGS (4)
  1. SERTRALIN HEXAL [Suspect]
     Indication: OBSESSIVE-COMPULSIVE DISORDER
     Dosage: 75 MG, BID
     Route: 048
     Dates: start: 20100501, end: 201101
  2. SERTRALIN HEXAL [Suspect]
     Dosage: 50 MG, BID
     Dates: start: 20120529
  3. SERTRALIN HEXAL [Suspect]
     Dosage: 25 MG, BID
     Dates: start: 20120629
  4. SERTRALIN HEXAL [Suspect]
     Dosage: 50 MG, BID
     Dates: start: 20120718

REACTIONS (1)
  - Growth retardation [Not Recovered/Not Resolved]
